FAERS Safety Report 12372346 (Version 4)
Quarter: 2016Q4

REPORT INFORMATION
  Report Type: Spontaneous
  Country: JP (occurrence: JP)
  Receive Date: 20160516
  Receipt Date: 20161005
  Transmission Date: 20170207
  Serious: Yes (Other)
  Sender: FDA-Public Use
  Company Number: JP-PFIZER INC-2016253836

PATIENT
  Age: 36 Year
  Sex: Female
  Weight: 49 kg

DRUGS (2)
  1. GABAPEN 400MG [Suspect]
     Active Substance: GABAPENTIN
     Dosage: 1600 MG, DAILY (IN THREE DIVIDED DOSES OF 400 MG, 400 MG AND 800 MG)
     Route: 048
     Dates: start: 20160330
  2. LOXONIN [Suspect]
     Active Substance: LOXOPROFEN SODIUM
     Dosage: 1 DF, 3X/DAY
     Route: 048
     Dates: start: 20160504, end: 20160510

REACTIONS (3)
  - Seizure [Recovering/Resolving]
  - Anticonvulsant drug level decreased [Unknown]
  - Hallucination, visual [Recovered/Resolved]

NARRATIVE: CASE EVENT DATE: 20160506
